FAERS Safety Report 15602894 (Version 1)
Quarter: 2018Q4

REPORT INFORMATION
  Report Type: Spontaneous
  Country: US (occurrence: US)
  Receive Date: 20181109
  Receipt Date: 20181109
  Transmission Date: 20190205
  Serious: Yes (Other)
  Sender: FDA-Public Use
  Company Number: US-AMGEN-USASP2017184194

PATIENT
  Age: 14 Year
  Sex: Male

DRUGS (5)
  1. BLINATUMOMAB [Suspect]
     Active Substance: BLINATUMOMAB
     Indication: ACUTE LYMPHOCYTIC LEUKAEMIA REFRACTORY
  2. PONATINIB [Concomitant]
     Active Substance: PONATINIB
     Indication: ACUTE LYMPHOCYTIC LEUKAEMIA REFRACTORY
  3. BLINATUMOMAB [Suspect]
     Active Substance: BLINATUMOMAB
     Indication: MUCORMYCOSIS
  4. PONATINIB [Concomitant]
     Active Substance: PONATINIB
     Indication: ACUTE LYMPHOCYTIC LEUKAEMIA
  5. BLINATUMOMAB [Suspect]
     Active Substance: BLINATUMOMAB
     Indication: ACUTE LYMPHOCYTIC LEUKAEMIA
     Dosage: 15 MUG/M2, CONTINUING (CONTINUOUS INFUSION)
     Route: 065

REACTIONS (3)
  - Pain [Unknown]
  - Cytokine release syndrome [Unknown]
  - Off label use [Unknown]
